FAERS Safety Report 5965348-8 (Version None)
Quarter: 2008Q4

REPORT INFORMATION
  Report Type: 
  Country: None (occurrence: None)
  Receive Date: 20081125
  Receipt Date: 20081119
  Transmission Date: 20090506
  Serious: Yes (Other)
  Sender: FDA-Public Use
  Company Number: BR-JNJFOC-20081104922

PATIENT
  Sex: Female
  Weight: 56 kg

DRUGS (2)
  1. TYLENOL (CAPLET) [Suspect]
  2. TYLENOL (CAPLET) [Suspect]
     Indication: PAIN IN EXTREMITY

REACTIONS (2)
  - SENSATION OF HEAVINESS [None]
  - SPEECH DISORDER [None]
